FAERS Safety Report 19181608 (Version 1)
Quarter: 2021Q2

REPORT INFORMATION
  Report Type: Spontaneous
  Country: CN (occurrence: CN)
  Receive Date: 20210426
  Receipt Date: 20210426
  Transmission Date: 20210717
  Serious: Yes (Other)
  Sender: FDA-Public Use
  Company Number: CN-ROCHE-2815986

PATIENT
  Age: 57 Year
  Sex: Male

DRUGS (12)
  1. MABTHERA [Suspect]
     Active Substance: RITUXIMAB
     Dosage: 24 AUG 2017, 23 SEP 2017, 20 OCT 2017 AND 21 NOV 2017, R?CHOP CHEMOTHERAPY, ON DAY 6
     Route: 065
  2. CYCLOPHOSPHAMIDE. [Concomitant]
     Active Substance: CYCLOPHOSPHAMIDE
     Indication: EXTRANODAL MARGINAL ZONE B-CELL LYMPHOMA (MALT TYPE)
     Dosage: ON 02 JUL 2017 AND 29 JUL 2017, R?CHOP CHEMOTHERAPY, ON DAY 1
  3. VINDESINE [Concomitant]
     Active Substance: VINDESINE
     Indication: EXTRANODAL MARGINAL ZONE B-CELL LYMPHOMA (MALT TYPE)
     Dosage: ON 02 JUL 2017 AND 29 JUL 2017, R?CHOP CHEMOTHERAPY, ON DAY 1
  4. MABTHERA [Suspect]
     Active Substance: RITUXIMAB
     Indication: EXTRANODAL MARGINAL ZONE B-CELL LYMPHOMA (MALT TYPE)
     Dosage: ON 02 JUL 2017 AND 29 JUL 2017, R?CHOP CHEMOTHERAPY, ON DAY 6
     Route: 065
  5. DOXORUBICIN [Concomitant]
     Active Substance: DOXORUBICIN
     Indication: EXTRANODAL MARGINAL ZONE B-CELL LYMPHOMA (MALT TYPE)
     Dosage: ON 02 JUL 2017 AND 29 JUL 2017, R?CHOP CHEMOTHERAPY, FOR 3 TIMES
  6. METHYLPREDNISOLONE SODIUM SUCCINATE. [Concomitant]
     Active Substance: METHYLPREDNISOLONE SODIUM SUCCINATE
     Indication: EXTRANODAL MARGINAL ZONE B-CELL LYMPHOMA (MALT TYPE)
     Dosage: ON 02 JUL 2017 AND 29 JUL 2017, R?CHOP CHEMOTHERAPY, FOR 5 TIMES
  7. VINDESINE [Concomitant]
     Active Substance: VINDESINE
     Dosage: 24 AUG 2017, 23 SEP 2017, 20 OCT 2017 AND 21 NOV 2017, R?CHOP CHEMOTHERAPY,?ON DAY 1
  8. DOXORUBICIN [Concomitant]
     Active Substance: DOXORUBICIN
     Dosage: 24 AUG 2017, 23 SEP 2017, 20 OCT 2017 AND 21 NOV 2017, R?CHOP CHEMOTHERAPY,?FOR 3 TIMES
  9. MABTHERA [Suspect]
     Active Substance: RITUXIMAB
     Dosage: BR CHEMOTHERAPY , ON DAY 1
     Route: 065
  10. CYCLOPHOSPHAMIDE. [Concomitant]
     Active Substance: CYCLOPHOSPHAMIDE
     Dosage: 24 AUG 2017, 23 SEP 2017, 20 OCT 2017 AND 21 NOV 2017, R?CHOP CHEMOTHERAPY, ON DAY 1
  11. METHYLPREDNISOLONE SODIUM SUCCINATE. [Concomitant]
     Active Substance: METHYLPREDNISOLONE SODIUM SUCCINATE
     Dosage: 24 AUG 2017, 23 SEP 2017, 20 OCT 2017 AND 21 NOV 2017, R?CHOP CHEMOTHERAPY,?FOR 5 TIMES
  12. BENDAMUSTINE [Concomitant]
     Active Substance: BENDAMUSTINE
     Indication: EXTRANODAL MARGINAL ZONE B-CELL LYMPHOMA (MALT TYPE)
     Dosage: BR CHEMOTHERAPY, ON DAY 1?2
     Dates: start: 20210330

REACTIONS (3)
  - Off label use [Unknown]
  - Bacteraemia [Unknown]
  - Myelosuppression [Unknown]

NARRATIVE: CASE EVENT DATE: 2017
